FAERS Safety Report 20581947 (Version 1)
Quarter: 2022Q1

REPORT INFORMATION
  Report Type: Spontaneous
  Country: US (occurrence: None)
  Receive Date: 20220310
  Receipt Date: 20220310
  Transmission Date: 20220423
  Serious: Yes (Other)
  Sender: FDA-Public Use
  Company Number: None

PATIENT
  Age: 39 Year
  Sex: Female
  Weight: 65.25 kg

DRUGS (3)
  1. .DELTA.8-TETRAHYDROCANNABINOL\CANNABIDIOL\HERBALS [Suspect]
     Active Substance: .DELTA.8-TETRAHYDROCANNABINOL\CANNABIDIOL\HERBALS
     Indication: Anxiety
     Dosage: OTHER QUANTITY : 1 GUMMY;?FREQUENCY : AS NEEDED;?
     Route: 048
     Dates: start: 20220223, end: 20220306
  2. .DELTA.8-TETRAHYDROCANNABINOL\CANNABIDIOL\HERBALS [Suspect]
     Active Substance: .DELTA.8-TETRAHYDROCANNABINOL\CANNABIDIOL\HERBALS
     Indication: Insomnia
  3. VITAMINS [Concomitant]
     Active Substance: VITAMINS

REACTIONS (13)
  - Hypoaesthesia oral [None]
  - Paranoia [None]
  - Tremor [None]
  - Hallucination [None]
  - Panic attack [None]
  - Thinking abnormal [None]
  - Speech disorder [None]
  - Hypoaesthesia [None]
  - Peripheral coldness [None]
  - Headache [None]
  - Feeling cold [None]
  - Rash pruritic [None]
  - Rash [None]

NARRATIVE: CASE EVENT DATE: 20220306
